FAERS Safety Report 6862381-9 (Version None)
Quarter: 2010Q3

REPORT INFORMATION
  Report Type: 
  Country: None (occurrence: None)
  Receive Date: 20100719
  Receipt Date: 20100611
  Transmission Date: 20110219
  Serious: Yes (Other)
  Sender: FDA-Public Use
  Company Number: 2010-2096

PATIENT
  Age: 55 Year
  Sex: Female

DRUGS (2)
  1. SOMATULINE DEPOT [Suspect]
     Indication: PRODUCT USED FOR UNKNOWN INDICATION
     Dosage: (90 MG,) PARENTERAL
     Route: 051
     Dates: start: 20100128
  2. SOMATULINE DEPOT [Suspect]

REACTIONS (3)
  - DIARRHOEA [None]
  - HOT FLUSH [None]
  - METASTASES TO LIVER [None]
